FAERS Safety Report 5500694-3 (Version None)
Quarter: 2007Q4

REPORT INFORMATION
  Report Type: 
  Country: None (occurrence: None)
  Receive Date: 20071025
  Receipt Date: 20071016
  Transmission Date: 20080405
  Serious: Yes (Hospitalization)
  Sender: FDA-Public Use
  Company Number: 2007-04682

PATIENT
  Age: 48 Year
  Sex: Male
  Weight: 67.9 kg

DRUGS (3)
  1. TRAZODONE HYDROCHLORIDE [Suspect]
     Indication: BEREAVEMENT REACTION
     Dosage: ORAL
     Route: 048
     Dates: start: 20070923, end: 20070923
  2. PEGASYS [Suspect]
     Indication: HEPATITIS C
     Dosage: 100 MCG, 1/WEEK, SUBCUTANEOUS
     Route: 058
     Dates: start: 20070125, end: 20070924
  3. RIBAVIRIN [Suspect]
     Indication: HEPATITIS C
     Dosage: 6 TABLETS, DAILY, ORAL
     Route: 048
     Dates: start: 20070125, end: 20070924

REACTIONS (3)
  - DEPRESSION [None]
  - INTENTIONAL OVERDOSE [None]
  - SUICIDE ATTEMPT [None]
